FAERS Safety Report 12541420 (Version 1)
Quarter: 2016Q3

REPORT INFORMATION
  Report Type: Spontaneous
  Country: US (occurrence: US)
  Receive Date: 20160708
  Receipt Date: 20160708
  Transmission Date: 20161109
  Serious: Yes (Death, Hospitalization, Other)
  Sender: FDA-Public Use
  Company Number: US-TARO PHARMACEUTICALS USA.,INC-2016SUN00338

PATIENT
  Age: 41 Year
  Sex: Female
  Weight: 61.8 kg

DRUGS (2)
  1. CARBAMAZEPINE. [Suspect]
     Active Substance: CARBAMAZEPINE
     Indication: PRODUCT USED FOR UNKNOWN INDICATION
     Dosage: UNK
     Route: 065
  2. VALPROIC ACID. [Concomitant]
     Active Substance: VALPROIC ACID

REACTIONS (12)
  - Blood creatinine increased [Recovering/Resolving]
  - Transaminases increased [Recovering/Resolving]
  - Coagulopathy [Recovering/Resolving]
  - Brain injury [Fatal]
  - Unresponsive to stimuli [Recovering/Resolving]
  - Acidosis [Unknown]
  - Bundle branch block right [Unknown]
  - Electrocardiogram QT prolonged [Unknown]
  - Haemodynamic instability [Unknown]
  - Overdose [Fatal]
  - Cardiac arrest [Unknown]
  - Compartment syndrome [Unknown]
